FAERS Safety Report 10543963 (Version 4)
Quarter: 2015Q3

REPORT INFORMATION
  Report Type: Spontaneous
  Country: BR (occurrence: BR)
  Receive Date: 20141027
  Receipt Date: 20150819
  Transmission Date: 20151125
  Serious: Yes (Other)
  Sender: FDA-Public Use
  Company Number: BR-PFIZER INC-2014293536

PATIENT
  Age: 53 Year
  Sex: Female
  Weight: 57 kg

DRUGS (5)
  1. LANSOPRAZOLE. [Concomitant]
     Active Substance: LANSOPRAZOLE
     Dosage: 30 MG, IN THE MORNING
     Route: 048
  2. DAFLON [Concomitant]
     Active Substance: DIOSMIN\HESPERIDIN
     Indication: JOINT INJURY
     Dosage: UNK
  3. SUTENT [Suspect]
     Active Substance: SUNITINIB MALATE
     Indication: GASTROINTESTINAL STROMAL TUMOUR
     Dosage: 50 MG 1X/DAY, CYCLIC (4X2)
     Route: 048
     Dates: start: 20140906, end: 20141003
  4. SUTENT [Suspect]
     Active Substance: SUNITINIB MALATE
     Dosage: 50 MG, ALTERNATE DAY
     Route: 048
     Dates: end: 20150430
  5. VONAU [Concomitant]
     Active Substance: ONDANSETRON HYDROCHLORIDE

REACTIONS (23)
  - Pain in extremity [Unknown]
  - Ageusia [Unknown]
  - Weight decreased [Not Recovered/Not Resolved]
  - Skin fissures [Unknown]
  - Dysgeusia [Unknown]
  - Anaemia [Not Recovered/Not Resolved]
  - Haematoma [Unknown]
  - Feeling abnormal [Unknown]
  - Immunodeficiency [Recovering/Resolving]
  - Gait disturbance [Unknown]
  - Hyperkeratosis [Recovering/Resolving]
  - Lymphadenitis [Unknown]
  - Disease progression [Unknown]
  - Skin exfoliation [Not Recovered/Not Resolved]
  - Mouth ulceration [Recovering/Resolving]
  - Palmar-plantar erythrodysaesthesia syndrome [Not Recovered/Not Resolved]
  - Yellow skin [Recovering/Resolving]
  - Feeding disorder [Recovering/Resolving]
  - Gastrointestinal stromal tumour [Unknown]
  - Diarrhoea [Not Recovered/Not Resolved]
  - Pallor [Unknown]
  - Skin atrophy [Unknown]
  - Burning sensation [Unknown]

NARRATIVE: CASE EVENT DATE: 2014
